FAERS Safety Report 10835814 (Version 2)
Quarter: 2017Q3

REPORT INFORMATION
  Report Type: Report from Study
  Country: None (occurrence: US)
  Receive Date: 20150219
  Receipt Date: 20170731
  Transmission Date: 20171127
  Serious: Yes (Other)
  Sender: FDA-Public Use
  Company Number: US-ABBVIE-14P-163-1205036-00

PATIENT
  Age: 39 Year
  Sex: Male

DRUGS (3)
  1. METFORMIN [Concomitant]
     Active Substance: METFORMIN HYDROCHLORIDE
     Indication: DIABETES MELLITUS
     Route: 048
  2. HUMIRA [Suspect]
     Active Substance: ADALIMUMAB
     Indication: PSORIASIS
     Route: 058
     Dates: start: 2010
  3. ZOLOFT [Concomitant]
     Active Substance: SERTRALINE HYDROCHLORIDE
     Indication: ANXIETY
     Route: 048

REACTIONS (5)
  - Anaphylactic reaction [Not Recovered/Not Resolved]
  - Psoriasis [Unknown]
  - Anaphylactic reaction [Not Recovered/Not Resolved]
  - Ingrown hair [Not Recovered/Not Resolved]
  - Folliculitis [Unknown]

NARRATIVE: CASE EVENT DATE: 201306
